FAERS Safety Report 25823447 (Version 1)
Quarter: 2025Q3

REPORT INFORMATION
  Report Type: Spontaneous
  Country: US (occurrence: US)
  Receive Date: 20250919
  Receipt Date: 20250919
  Transmission Date: 20251021
  Serious: Yes (Other)
  Sender: VIVUS
  Company Number: US-VIVUS LLC-2024V1001072

PATIENT
  Age: 58 Year
  Sex: Female

DRUGS (1)
  1. QSYMIA [Suspect]
     Active Substance: PHENTERMINE HYDROCHLORIDE\TOPIRAMATE
     Indication: Weight decreased
     Dosage: UNK UNK , QD
     Route: 048
     Dates: start: 202308

REACTIONS (1)
  - Nephrolithiasis [Not Recovered/Not Resolved]
